FAERS Safety Report 18585748 (Version 1)
Quarter: 2020Q4

REPORT INFORMATION
  Report Type: Spontaneous
  Country: US (occurrence: US)
  Receive Date: 20201204
  Receipt Date: 20201204
  Transmission Date: 20210114
  Serious: Yes (Hospitalization)
  Sender: FDA-Public Use
  Company Number: None

PATIENT
  Sex: Female

DRUGS (8)
  1. BENLYSTA [Suspect]
     Active Substance: BELIMUMAB
     Indication: SYSTEMIC LUPUS ERYTHEMATOSUS
     Route: 058
     Dates: start: 20200104
  2. SMZ/TMP DS [Concomitant]
     Active Substance: SULFAMETHOXAZOLE\TRIMETHOPRIM
  3. SPIRON/HCTZ [Concomitant]
  4. CLONIDINE. [Concomitant]
     Active Substance: CLONIDINE
  5. PREDNISONE. [Concomitant]
     Active Substance: PREDNISONE
  6. CIPROFLOXACN [Concomitant]
     Active Substance: CIPROFLOXACIN
  7. RAYALDEE [Concomitant]
     Active Substance: CALCIFEDIOL
  8. ONDANSETRON [Concomitant]
     Active Substance: ONDANSETRON

REACTIONS (2)
  - Anaemia [None]
  - Therapy interrupted [None]
